FAERS Safety Report 4420106-0 (Version None)
Quarter: 2004Q3

REPORT INFORMATION
  Report Type: 
  Country: None (occurrence: None)
  Receive Date: 20040806
  Receipt Date: 20040806
  Transmission Date: 20050211
  Serious: Yes (Life-Threatening, Hospitalization)
  Sender: FDA-Public Use
  Company Number: None

PATIENT
  Sex: Male
  Weight: 63.5036 kg

DRUGS (2)
  1. ZOLOFT [Suspect]
     Indication: DEPRESSION
     Dosage: 100 MG ONCE A DAY ORAL
     Route: 048
     Dates: start: 20030731, end: 20040729
  2. PAXIL [Suspect]
     Indication: PANIC DISORDER
     Dosage: ONCE A DAY ORAL
     Route: 048
     Dates: start: 20010310, end: 20021010

REACTIONS (4)
  - CONFUSIONAL STATE [None]
  - OVERDOSE [None]
  - SUICIDAL IDEATION [None]
  - THINKING ABNORMAL [None]
